FAERS Safety Report 9775501 (Version 2)
Quarter: 2013Q4

REPORT INFORMATION
  Report Type: Spontaneous
  Country: CH (occurrence: CH)
  Receive Date: 20131220
  Receipt Date: 20131231
  Transmission Date: 20140711
  Serious: Yes (Hospitalization)
  Sender: FDA-Public Use
  Company Number: CH-PFIZER INC-2013363701

PATIENT
  Age: 83 Year
  Sex: Male
  Weight: 76 kg

DRUGS (9)
  1. ALDACTONE [Suspect]
     Dosage: 12.5 MG, 1X/DAY
     Route: 048
  2. TORASEMIDE [Suspect]
     Dosage: 5 MG, 1X/DAY
     Route: 048
  3. ZYTIGA [Suspect]
     Indication: PROSTATE CANCER
     Dosage: UNK
     Route: 048
     Dates: start: 20130530, end: 20130716
  4. ZYTIGA [Suspect]
     Dosage: 750 MG, 1X/DAY
     Route: 048
     Dates: start: 20130729, end: 20130729
  5. RYTHMONORM [Suspect]
     Dosage: 300 MG, 2X/DAY
     Route: 048
  6. EXFORGE [Suspect]
     Dosage: 1 DF (160MG/5MG), 1X/DAY
     Route: 048
  7. PREDNISONE [Suspect]
     Indication: POLYMYALGIA RHEUMATICA
     Dosage: 5 MG, 1X/DAY
     Route: 048
  8. CALCIMAGON-D3 [Suspect]
     Dosage: 2500 MG, 1X/DAY
     Route: 048
  9. CARBAMAZEPINE [Suspect]
     Indication: TRIGEMINAL NEURALGIA
     Dosage: UNK
     Route: 048
     Dates: end: 201307

REACTIONS (1)
  - Liver injury [Recovered/Resolved]
